FAERS Safety Report 15480047 (Version 1)
Quarter: 2018Q4

REPORT INFORMATION
  Report Type: Spontaneous
  Country: DE (occurrence: DE)
  Receive Date: 20181009
  Receipt Date: 20181009
  Transmission Date: 20190205
  Serious: Yes (Other)
  Sender: FDA-Public Use
  Company Number: PHHY2018DE116931

PATIENT
  Age: 23 Year
  Sex: Female

DRUGS (4)
  1. FOLIC ACID. [Suspect]
     Active Substance: FOLIC ACID
     Indication: TETRAHYDROBIOPTERIN DEFICIENCY
     Dosage: 0.4 MG, QD
     Route: 065
  2. CARBIDOPA AND LEVODOPA [Suspect]
     Active Substance: CARBIDOPA\LEVODOPA
     Indication: TETRAHYDROBIOPTERIN DEFICIENCY
     Dosage: 4-5MG/KG, QD
     Route: 065
  3. OXITRIPTAN [Suspect]
     Active Substance: OXITRIPTAN
     Indication: TETRAHYDROBIOPTERIN DEFICIENCY
     Dosage: 5 MG/KG, QD
     Route: 065
  4. FOLINIC ACID [Suspect]
     Active Substance: LEUCOVORIN
     Indication: TETRAHYDROBIOPTERIN DEFICIENCY
     Dosage: 15 MG, QD
     Route: 065

REACTIONS (3)
  - Maternal exposure during pregnancy [Unknown]
  - Product use in unapproved indication [Unknown]
  - Abortion spontaneous [Unknown]
